FAERS Safety Report 5140900-0 (Version None)
Quarter: 2006Q4

REPORT INFORMATION
  Report Type: 
  Country: None (occurrence: None)
  Receive Date: 20060905
  Receipt Date: 20060711
  Transmission Date: 20070319
  Serious: No
  Sender: FDA-Public Use
  Company Number: 35846

PATIENT
  Sex: Male

DRUGS (1)
  1. NEVANAC [Suspect]

REACTIONS (1)
  - FOREIGN BODY SENSATION IN EYES [None]
